FAERS Safety Report 23533179 (Version 4)
Quarter: 2024Q2

REPORT INFORMATION
  Report Type: Report from Study
  Country: US (occurrence: US)
  Receive Date: 20240216
  Receipt Date: 20240429
  Transmission Date: 20240716
  Serious: Yes (Other)
  Sender: FDA-Public Use
  Company Number: US-002147023-NVSC2024US000605

PATIENT
  Sex: Female

DRUGS (1)
  1. MAYZENT [Suspect]
     Active Substance: SIPONIMOD
     Indication: Product used for unknown indication
     Dosage: UNK
     Route: 065

REACTIONS (12)
  - Multiple sclerosis [Unknown]
  - Heart rate increased [Unknown]
  - Muscle spasms [Unknown]
  - Sinusitis [Unknown]
  - Visual impairment [Unknown]
  - Fatigue [Unknown]
  - Pain [Unknown]
  - Blood pressure increased [Unknown]
  - Asthenia [Unknown]
  - Gait disturbance [Unknown]
  - Humidity intolerance [Unknown]
  - Feeling hot [Unknown]
